FAERS Safety Report 19513719 (Version 2)
Quarter: 2021Q3

REPORT INFORMATION
  Report Type: Report from Study
  Country: US (occurrence: US)
  Receive Date: 20210709
  Receipt Date: 20210811
  Transmission Date: 20211014
  Serious: Yes (Death)
  Sender: FDA-Public Use
  Company Number: US-BAXTER-2021BAX020486

PATIENT
  Age: 62 Year
  Sex: Female

DRUGS (4)
  1. DOXIL [Suspect]
     Active Substance: DOXORUBICIN HYDROCHLORIDE
     Indication: HODGKIN^S DISEASE
     Dosage: ON DAYS 1 AND 15 OF EACH 28?DAY CYCLE FOR UP TO 6 CYCLES (25 MG/M2, CYCLICAL)
     Route: 042
  2. VINBLASTINE [Suspect]
     Active Substance: VINBLASTINE
     Indication: HODGKIN^S DISEASE
     Dosage: ON DAYS 1 AND 15 OF EACH 28?DAY CYCLE FOR UP TO 6 CYCLES (6 MG/M2, CYCLICAL)
     Route: 042
  3. BRENTUXIMAB VEDOTIN [Suspect]
     Active Substance: BRENTUXIMAB VEDOTIN
     Indication: HODGKIN^S DISEASE
     Dosage: ON DAYS 1 AND 15 OF EACH 28?DAY CYCLE FOR UP TO 6 CYCLES (1.2 MG/KG)
     Route: 042
  4. DACARBAZINE. [Suspect]
     Active Substance: DACARBAZINE
     Indication: HODGKIN^S DISEASE
     Dosage: ON DAYS 1 AND 15 OF EACH 28?DAY CYCLE FOR UP TO 6 CYCLES ,(375 MG/M2, CYCLICAL)
     Route: 042

REACTIONS (1)
  - Haemophagocytic lymphohistiocytosis [Fatal]
